FAERS Safety Report 21567735 (Version 1)
Quarter: 2022Q4

REPORT INFORMATION
  Report Type: Spontaneous
  Country: US (occurrence: US)
  Receive Date: 20221108
  Receipt Date: 20221108
  Transmission Date: 20230113
  Serious: Yes (Other)
  Sender: FDA-Public Use
  Company Number: US-Blueprint Medicines Corporation-SP-US-2022-003148

PATIENT
  Age: 57 Year
  Sex: Male

DRUGS (1)
  1. AYVAKIT [Suspect]
     Active Substance: AVAPRITINIB
     Indication: Systemic mastocytosis
     Route: 048
     Dates: start: 20180901

REACTIONS (5)
  - Chronic myelomonocytic leukaemia [Not Recovered/Not Resolved]
  - Platelet count abnormal [Recovering/Resolving]
  - Monocyte count increased [Not Recovered/Not Resolved]
  - Full blood count decreased [Not Recovered/Not Resolved]
  - COVID-19 [Not Recovered/Not Resolved]

NARRATIVE: CASE EVENT DATE: 20220630
